FAERS Safety Report 7215300-X (Version None)
Quarter: 2011Q1

REPORT INFORMATION
  Report Type: 
  Country: None (occurrence: None)
  Receive Date: 20110107
  Receipt Date: 20110106
  Transmission Date: 20110831
  Serious: Yes (Death)
  Sender: FDA-Public Use
  Company Number: US-PFIZER INC-2011000356

PATIENT
  Age: 41 Year
  Sex: Female

DRUGS (5)
  1. CARISOPRODOL [Suspect]
     Route: 065
  2. ALPRAZOLAM [Suspect]
     Route: 065
  3. METFORMIN HCL [Suspect]
     Route: 065
  4. METHAMPHETAMINE [Suspect]
     Route: 065
  5. OXYCODONE [Suspect]
     Route: 065

REACTIONS (3)
  - DEATH [None]
  - CARDIAC ARREST [None]
  - RESPIRATORY ARREST [None]
